FAERS Safety Report 9166255 (Version 2)
Quarter: 2013Q2

REPORT INFORMATION
  Report Type: Spontaneous
  Country: JP (occurrence: JP)
  Receive Date: 20130315
  Receipt Date: 20130405
  Transmission Date: 20140414
  Serious: Yes (Hospitalization)
  Sender: FDA-Public Use
  Company Number: PHHY2013JP023528

PATIENT
  Age: 19 Year
  Sex: Female
  Weight: 47 kg

DRUGS (3)
  1. IBUPROFEN [Suspect]
     Indication: NASOPHARYNGITIS
     Dates: start: 200802
  2. IBUPROFEN [Suspect]
     Indication: HEADACHE
  3. PARACETAMOL [Suspect]
     Route: 048

REACTIONS (13)
  - Vanishing bile duct syndrome [Recovered/Resolved]
  - Cholestasis [Unknown]
  - Hepatic function abnormal [Recovered/Resolved]
  - Jaundice [Recovered/Resolved]
  - Toxic epidermal necrolysis [Recovered/Resolved]
  - Pyrexia [Recovered/Resolved]
  - Rash generalised [Recovered/Resolved]
  - Conjunctival hyperaemia [Unknown]
  - Blister [Recovered/Resolved]
  - Erythema [Unknown]
  - Gingival erosion [Unknown]
  - Pneumonia [Recovered/Resolved]
  - Viral infection [Unknown]
